FAERS Safety Report 16853122 (Version 1)
Quarter: 2019Q3

REPORT INFORMATION
  Report Type: Spontaneous
  Country: DE (occurrence: DE)
  Receive Date: 20190925
  Receipt Date: 20190925
  Transmission Date: 20191005
  Serious: Yes (Hospitalization, Other)
  Sender: FDA-Public Use
  Company Number: DE-009507513-1909DEU008806

PATIENT
  Sex: Female

DRUGS (1)
  1. ZINPLAVA [Suspect]
     Active Substance: BEZLOTOXUMAB

REACTIONS (4)
  - Leukopenia [Unknown]
  - Diarrhoea [Unknown]
  - Adverse event [Unknown]
  - Pyrexia [Unknown]
